FAERS Safety Report 7578388-2 (Version None)
Quarter: 2011Q2

REPORT INFORMATION
  Report Type: 
  Country: None (occurrence: None)
  Receive Date: 20110628
  Receipt Date: 20110624
  Transmission Date: 20111010
  Serious: Yes (Other)
  Sender: FDA-Public Use
  Company Number: GXKR2011DE02111

PATIENT
  Sex: Male

DRUGS (6)
  1. BICALUTAMIDE [Suspect]
     Indication: PROSTATIC OPERATION
     Dosage: 150 MG, UNK
     Route: 048
     Dates: start: 20090801
  2. VINCRISTINE [Suspect]
     Indication: CHRONIC LYMPHOCYTIC LEUKAEMIA
     Route: 042
     Dates: start: 20100501
  3. DOXORUBICIN HCL [Suspect]
     Indication: CHRONIC LYMPHOCYTIC LEUKAEMIA
     Route: 042
     Dates: start: 20100501
  4. CYCLOPHOSPHAMIDE [Suspect]
     Indication: CHRONIC LYMPHOCYTIC LEUKAEMIA
     Route: 042
     Dates: start: 20100501
  5. PREDNISONE [Suspect]
     Indication: CHRONIC LYMPHOCYTIC LEUKAEMIA
     Route: 042
     Dates: start: 20100501
  6. RITUXAN [Concomitant]
     Indication: CHRONIC LYMPHOCYTIC LEUKAEMIA
     Route: 042
     Dates: start: 20100301

REACTIONS (2)
  - PANCYTOPENIA [None]
  - ANAEMIA [None]
